FAERS Safety Report 4910389-2 (Version None)
Quarter: 2006Q1

REPORT INFORMATION
  Report Type: 
  Country: None (occurrence: None)
  Receive Date: 20060213
  Receipt Date: 20050627
  Transmission Date: 20060701
  Serious: Yes (Death)
  Sender: FDA-Public Use
  Company Number: US-MERCK-0507USA00175

PATIENT
  Age: 73 Year
  Sex: Female
  Weight: 45 kg

DRUGS (17)
  1. VIOXX [Suspect]
     Indication: ARTHRITIS
     Route: 048
     Dates: start: 20030803, end: 20040826
  2. MIRALAX [Concomitant]
     Route: 065
  3. LOVASTATIN [Concomitant]
     Route: 065
  4. CEFADROXIL [Concomitant]
     Route: 065
  5. METFORMIN [Concomitant]
     Route: 065
  6. ALLOPURINOL MSD [Concomitant]
     Route: 065
  7. KLOR-CON [Concomitant]
     Route: 065
  8. RANITIDINE [Concomitant]
     Route: 065
  9. DIGITEK [Concomitant]
     Route: 065
  10. CAPTOPRIL MSD [Concomitant]
     Route: 065
  11. PROPOXYPHENE HYDROCHLORIDE [Concomitant]
     Route: 065
  12. ALBUTEROL [Concomitant]
     Route: 065
  13. SULINDAC [Concomitant]
     Route: 065
  14. BUMEX [Concomitant]
     Route: 065
  15. COUMADIN [Concomitant]
     Route: 065
  16. ATIVAN [Concomitant]
     Route: 065
  17. PATANOL [Concomitant]
     Route: 065

REACTIONS (11)
  - ARRHYTHMIA [None]
  - ARTERIOSCLEROSIS CORONARY ARTERY [None]
  - ATRIAL FIBRILLATION [None]
  - BRONCHIAL HYPERACTIVITY [None]
  - CARDIO-RESPIRATORY ARREST [None]
  - CHRONIC RESPIRATORY DISEASE [None]
  - GOUT [None]
  - HIATUS HERNIA [None]
  - HYPERLIPIDAEMIA [None]
  - HYPERTENSION [None]
  - INJURY [None]
